FAERS Safety Report 10646902 (Version 2)
Quarter: 2014Q4

REPORT INFORMATION
  Report Type: Spontaneous
  Country: US (occurrence: US)
  Receive Date: 20141211
  Receipt Date: 20141223
  Transmission Date: 20150529
  Serious: Yes (Other)
  Sender: FDA-Public Use
  Company Number: US-PERRIGO-14US011691

PATIENT
  Sex: Female

DRUGS (2)
  1. OXYMETAZOLINE HCL [Suspect]
     Active Substance: OXYMETAZOLINE HYDROCHLORIDE
     Indication: NASAL CONGESTION
     Dosage: UNK, UNK
     Route: 045
     Dates: start: 20141124
  2. OXYMETAZOLINE HCL [Suspect]
     Active Substance: OXYMETAZOLINE HYDROCHLORIDE
     Indication: SINUSITIS

REACTIONS (5)
  - Choking [Recovered/Resolved]
  - Wheezing [Unknown]
  - Spinal pain [Unknown]
  - Drug ineffective [Unknown]
  - Dyspnoea [Unknown]

NARRATIVE: CASE EVENT DATE: 20141124
